FAERS Safety Report 14567086 (Version 4)
Quarter: 2018Q2

REPORT INFORMATION
  Report Type: Report from Study
  Country: None (occurrence: JP)
  Receive Date: 20180223
  Receipt Date: 20180626
  Transmission Date: 20180711
  Serious: Yes (Life-Threatening)
  Sender: FDA-Public Use
  Company Number: JP-ABBVIE-18P-087-2267543-00

PATIENT
  Age: 65 Year
  Sex: Male
  Weight: 40.9 kg

DRUGS (2)
  1. ELDECALCITOL [Concomitant]
     Active Substance: ELDECALCITOL
     Indication: OSTEOPOROSIS
     Dosage: 0.75 UG, UNKNOWN
     Route: 048
     Dates: start: 20171115
  2. LEUPLIN [Suspect]
     Active Substance: LEUPROLIDE ACETATE
     Indication: BULBOSPINAL MUSCULAR ATROPHY CONGENITAL
     Dosage: 11.25 MG, Q3MONTHS
     Route: 058
     Dates: start: 20171115, end: 20171115

REACTIONS (2)
  - Emphysema [Recovering/Resolving]
  - Condition aggravated [Recovering/Resolving]

NARRATIVE: CASE EVENT DATE: 20180214
